FAERS Safety Report 12494027 (Version 5)
Quarter: 2016Q4

REPORT INFORMATION
  Report Type: Spontaneous
  Country: US (occurrence: US)
  Receive Date: 20160623
  Receipt Date: 20161021
  Transmission Date: 20170207
  Serious: Yes (Other)
  Sender: FDA-Public Use
  Company Number: US-EMERGENT BIOSOLUTIONS-16BA00053SP

PATIENT
  Age: 33 Year
  Sex: Male
  Weight: 68.27 kg

DRUGS (10)
  1. PLASMALYTE A [Concomitant]
     Dosage: 125 UNK, UNK
     Route: 042
     Dates: start: 20160611, end: 20160612
  2. VANCOMYCIN [Concomitant]
     Active Substance: VANCOMYCIN
     Indication: ANTIBIOTIC THERAPY
     Dosage: 1750 MG, Q8H
     Dates: start: 20160615, end: 20160623
  3. DIPRIVAN [Concomitant]
     Active Substance: PROPOFOL
     Indication: SEDATIVE THERAPY
     Dosage: 5 MCG, UNK
     Dates: start: 20160609, end: 20160615
  4. FENTANYL. [Concomitant]
     Active Substance: FENTANYL
     Indication: ANALGESIC THERAPY
     Dosage: 0.7 MCG, PRN
     Dates: start: 20160609, end: 20160615
  5. NEXIUM [Concomitant]
     Active Substance: ESOMEPRAZOLE MAGNESIUM
     Indication: GASTROOESOPHAGEAL REFLUX DISEASE
     Dosage: 20 MG, QD
     Route: 050
     Dates: start: 20160618, end: 20160623
  6. BAT [Suspect]
     Active Substance: EQUINE BOTULINUM NEUROTOXIN A/B/C/D/E/F/G IMMUNE FAB2
     Indication: BOTULISM
     Dosage: 176 ML, SINGLE
     Route: 042
     Dates: start: 20160610, end: 20160610
  7. PROPOFOL. [Concomitant]
     Active Substance: PROPOFOL
     Indication: SEDATION
  8. HEPARIN SODIUM IN DEXTROSE [Concomitant]
     Active Substance: HEPARIN SODIUM
     Indication: ANTICOAGULANT THERAPY
     Dosage: 50000 UNK, TID
     Route: 058
     Dates: start: 20160609, end: 20160622
  9. MERREM [Concomitant]
     Active Substance: MEROPENEM
     Indication: ANTIBIOTIC THERAPY
     Dosage: 1 G, TID
     Route: 042
     Dates: start: 20160620, end: 20160623
  10. LEVOFLOXACIN. [Concomitant]
     Active Substance: LEVOFLOXACIN
     Indication: ANTIBIOTIC THERAPY
     Dosage: 750 MG, QD
     Route: 042
     Dates: start: 20160615, end: 20160620

REACTIONS (5)
  - Rash [Recovering/Resolving]
  - Pneumonia [Recovered/Resolved]
  - Pyrexia [Recovered/Resolved]
  - Tachycardia [Recovered/Resolved]
  - Blood pressure decreased [Recovered/Resolved]

NARRATIVE: CASE EVENT DATE: 20160610
